FAERS Safety Report 12627005 (Version 1)
Quarter: 2016Q3

REPORT INFORMATION
  Report Type: Spontaneous
  Country: DE (occurrence: DE)
  Receive Date: 20160805
  Receipt Date: 20160805
  Transmission Date: 20161109
  Serious: Yes (Congenital Anomaly, Other)
  Sender: FDA-Public Use
  Company Number: DE-JNJFOC-20160801979

PATIENT
  Age: 0 Day
  Sex: Male
  Weight: 2.6 kg

DRUGS (5)
  1. LORAZEPAM. [Suspect]
     Active Substance: LORAZEPAM
     Indication: SCHIZOPHRENIA
     Dosage: IRREGULARLY DURING FIRST AND SECOND TRIMESTER; FROM GESTATIONAL WEEK 5 TO 39
     Route: 064
  2. MIRTAZAPIN [Suspect]
     Active Substance: MIRTAZAPINE
     Indication: SCHIZOPHRENIA
     Dosage: IRREGULARLY DURING FIRST AND SECOND TRIMESTER; FROM GESTATIONAL WEEK 5 TO 39
     Route: 064
  3. SEROQUEL [Suspect]
     Active Substance: QUETIAPINE FUMARATE
     Indication: SCHIZOPHRENIA
     Dosage: IRREGULARLY DURING FIRST AND SECOND TRIMESTER; FROM GESTATIONAL WEEK 5 TO 39
     Route: 064
  4. RISPERIDONE. [Suspect]
     Active Substance: RISPERIDONE
     Indication: SCHIZOPHRENIA
     Dosage: DURING THIRD TRIMESTER
     Route: 064
  5. VENLAFAXINE [Suspect]
     Active Substance: VENLAFAXINE HYDROCHLORIDE
     Indication: SCHIZOPHRENIA
     Dosage: PROBABLY THIRD TRIMESTER
     Route: 064

REACTIONS (6)
  - Foetal exposure during pregnancy [Unknown]
  - Arachnoid cyst [Unknown]
  - Feeding disorder [Recovered/Resolved]
  - Small for dates baby [Recovering/Resolving]
  - Congenital central nervous system anomaly [Not Recovered/Not Resolved]
  - Respiratory disorder neonatal [Recovered/Resolved]

NARRATIVE: CASE EVENT DATE: 20160403
